FAERS Safety Report 5201749-3 (Version None)
Quarter: 2007Q1

REPORT INFORMATION
  Report Type: 
  Country: None (occurrence: None)
  Receive Date: 20070104
  Receipt Date: 20061220
  Transmission Date: 20070707
  Serious: No
  Sender: FDA-Public Use
  Company Number: 2006JP005424

PATIENT
  Age: 6 Year
  Sex: Female
  Weight: 18 kg

DRUGS (3)
  1. PROTOPIC [Suspect]
     Indication: DERMATITIS ATOPIC
     Dosage: 0.03%, UNK, TOPICAL
     Route: 061
     Dates: start: 20051202
  2. LIDOMEX (PREDNISOLONE VALEROACETATE) CREAM [Suspect]
     Indication: DERMATITIS ATOPIC
     Dosage: 0.15 G, UNK/D, TOPICAL
     Route: 061
  3. METHADERM (DEXAMETHASONE DIPROPIONATE) OINTMENT [Suspect]
     Indication: DERMATITIS ATOPIC
     Dosage: 0.1 G, UNK/D; TOPICAL
     Route: 061

REACTIONS (1)
  - SKIN PAPILLOMA [None]
